FAERS Safety Report 19095030 (Version 1)
Quarter: 2021Q2

REPORT INFORMATION
  Report Type: Report from Study
  Country: None (occurrence: US)
  Receive Date: 20210405
  Receipt Date: 20210405
  Transmission Date: 20210717
  Serious: Yes (Other)
  Sender: FDA-Public Use
  Company Number: US-ABBVIE-21K-163-3837524-00

PATIENT
  Age: 13 Year
  Sex: Female

DRUGS (1)
  1. HUMIRA [Suspect]
     Active Substance: ADALIMUMAB
     Indication: CROHN^S DISEASE
     Dosage: CF
     Route: 058
     Dates: start: 20200730

REACTIONS (6)
  - Eye swelling [Recovered/Resolved]
  - Product quality issue [Unknown]
  - Anaphylactic shock [Recovered/Resolved]
  - Lip swelling [Recovered/Resolved]
  - Dyspnoea [Recovered/Resolved]
  - Pain in extremity [Recovering/Resolving]

NARRATIVE: CASE EVENT DATE: 20210327
